FAERS Safety Report 23041989 (Version 3)
Quarter: 2023Q4

REPORT INFORMATION
  Report Type: Spontaneous
  Country: US (occurrence: US)
  Receive Date: 20231007
  Receipt Date: 20231122
  Transmission Date: 20240109
  Serious: No
  Sender: FDA-Public Use
  Company Number: US-SA-SAC20231004000229

PATIENT
  Age: 24 Year
  Sex: Female

DRUGS (1)
  1. DUPIXENT [Suspect]
     Active Substance: DUPILUMAB
     Indication: Dermatitis atopic
     Dosage: 300 MG, QOW
     Route: 058

REACTIONS (7)
  - Pain [Recovered/Resolved]
  - Chills [Unknown]
  - Migraine [Recovered/Resolved]
  - Headache [Unknown]
  - Dry skin [Unknown]
  - Erythema [Unknown]
  - Therapeutic response unexpected [Unknown]
